FAERS Safety Report 23331766 (Version 1)
Quarter: 2023Q4

REPORT INFORMATION
  Report Type: Spontaneous
  Country: US (occurrence: US)
  Receive Date: 20231222
  Receipt Date: 20231222
  Transmission Date: 20240110
  Serious: Yes (Death, Hospitalization, Other)
  Sender: FDA-Public Use
  Company Number: US-ORGANON-O2312USA001919

PATIENT
  Age: 58 Year
  Sex: Female

DRUGS (8)
  1. REMERON [Suspect]
     Active Substance: MIRTAZAPINE
     Dosage: UNK
     Route: 048
  2. FLUOXETINE [Suspect]
     Active Substance: FLUOXETINE HYDROCHLORIDE
     Dosage: UNK
     Route: 048
  3. BUPROPION [Suspect]
     Active Substance: BUPROPION
     Dosage: UNK
     Route: 048
  4. OLANZAPINE [Suspect]
     Active Substance: OLANZAPINE
     Dosage: UNK
     Route: 048
  5. METOPROLOL [Suspect]
     Active Substance: METOPROLOL
     Dosage: UNK
     Route: 048
  6. DIPHENHYDRAMINE [Suspect]
     Active Substance: DIPHENHYDRAMINE
     Dosage: UNK
     Route: 048
  7. HALOPERIDOL [Suspect]
     Active Substance: HALOPERIDOL
     Dosage: UNK
     Route: 048
  8. OMEPRAZOLE [Suspect]
     Active Substance: OMEPRAZOLE
     Dosage: UNK
     Route: 048

REACTIONS (2)
  - Suspected suicide [Fatal]
  - Cardio-respiratory arrest [Unknown]
